FAERS Safety Report 9370079 (Version 3)
Quarter: 2013Q4

REPORT INFORMATION
  Report Type: Report from Study
  Country: US (occurrence: US)
  Receive Date: 20130626
  Receipt Date: 20131029
  Transmission Date: 20140711
  Serious: Yes (Hospitalization, Other)
  Sender: FDA-Public Use
  Company Number: PHEH2013US013604

PATIENT
  Sex: Female

DRUGS (3)
  1. SANDIMMUNE [Suspect]
     Indication: RENAL TRANSPLANT
     Dosage: 100 MG, BID
     Route: 048
     Dates: start: 198609
  2. BETA BLOCKER [Concomitant]
     Indication: CARDIAC DISORDER
  3. PREDNISONE [Concomitant]

REACTIONS (6)
  - Atrial fibrillation [Unknown]
  - Skin cancer [Unknown]
  - Premature ageing [Unknown]
  - Sluggishness [Unknown]
  - Joint injury [Unknown]
  - Musculoskeletal pain [Not Recovered/Not Resolved]
